FAERS Safety Report 19443192 (Version 1)
Quarter: 2021Q2

REPORT INFORMATION
  Report Type: Spontaneous
  Country: GB (occurrence: GB)
  Receive Date: 20210621
  Receipt Date: 20210621
  Transmission Date: 20210717
  Serious: Yes (Other)
  Sender: FDA-Public Use
  Company Number: GB-PFIZER INC-2021657711

PATIENT
  Age: 41 Year
  Sex: Female

DRUGS (6)
  1. REMSIMA [Suspect]
     Active Substance: INFLIXIMAB
     Dosage: 430 MG
     Route: 065
  2. WATER. [Suspect]
     Active Substance: WATER
     Indication: MEDICATION DILUTION
     Dosage: UNK (PHARMACEUTICAL DOSE FORM 236)
     Route: 065
  3. WATER. [Suspect]
     Active Substance: WATER
     Dosage: UNK (PHARMACEUTICAL DOSE FORM 236)
     Route: 065
  4. SODIUM CHLORIDE 0.9% [Suspect]
     Active Substance: SODIUM CHLORIDE
     Indication: MEDICATION DILUTION
     Dosage: UNK (PHARMACEUTICAL DOSE FORM 230)
     Route: 042
  5. SODIUM CHLORIDE 0.9% [Suspect]
     Active Substance: SODIUM CHLORIDE
     Dosage: UNK (PHARMACEUTICAL DOSE FORM 230)
     Route: 042
  6. REMSIMA [Suspect]
     Active Substance: INFLIXIMAB
     Dosage: 430 MG
     Route: 065

REACTIONS (3)
  - Diarrhoea [Unknown]
  - Abdominal pain [Unknown]
  - Insomnia [Unknown]
